FAERS Safety Report 7797830-5 (Version None)
Quarter: 2011Q4

REPORT INFORMATION
  Report Type: 
  Country: None (occurrence: None)
  Receive Date: 20111005
  Receipt Date: 20110928
  Transmission Date: 20120403
  Serious: Yes (Hospitalization, Other)
  Sender: FDA-Public Use
  Company Number: US-B.I. PHARMACEUTICALS,INC./RIDGEFIELD-2011-BP-19456BP

PATIENT
  Sex: Male

DRUGS (16)
  1. MULTI-VITAMINS [Concomitant]
     Indication: ROUTINE HEALTH MAINTENANCE
     Route: 048
  2. TOPROL-XL [Concomitant]
     Indication: HYPERTENSION
  3. TOPROL-XL [Concomitant]
     Indication: MYOCARDIAL INFARCTION
  4. TOPROL-XL [Concomitant]
     Indication: ATRIAL FIBRILLATION
     Dosage: 50 MG
     Route: 048
     Dates: start: 20010101
  5. LASIX [Concomitant]
     Indication: HYPERTENSION
     Dosage: 40 MG
     Route: 048
     Dates: start: 19950101
  6. ZOCOR [Concomitant]
     Indication: BLOOD CHOLESTEROL INCREASED
     Dosage: 20 MG
     Route: 048
     Dates: start: 19950101
  7. PRINIVIL [Concomitant]
     Indication: HYPERTENSION
     Dosage: 20 MG
     Route: 048
     Dates: start: 19950101
  8. JANUMET [Concomitant]
     Indication: DIABETES MELLITUS
     Route: 048
     Dates: start: 20100101
  9. ASPIRIN [Concomitant]
     Indication: ATRIAL FIBRILLATION
     Dosage: 81 MG
     Route: 048
     Dates: start: 19960101
  10. VITAMIN-MINERAL COMPOUND TAB [Concomitant]
     Indication: ROUTINE HEALTH MAINTENANCE
     Route: 048
  11. PROTONIX [Concomitant]
     Indication: GASTRIC ULCER
     Route: 048
     Dates: start: 20060101
  12. PRADAXA [Suspect]
     Indication: ATRIAL FIBRILLATION
     Dosage: 300 MG
     Route: 048
     Dates: start: 20110720, end: 20110804
  13. NOVOLIN 70/30 [Concomitant]
     Indication: DIABETES MELLITUS
     Dosage: 10 U
     Route: 058
  14. PROSCAR [Concomitant]
     Indication: PROSTATOMEGALY
     Route: 048
     Dates: start: 20010101
  15. PROSCAR [Concomitant]
     Indication: BENIGN PROSTATIC HYPERPLASIA
  16. POTASSIUM [Concomitant]
     Indication: BLOOD POTASSIUM DECREASED
     Dosage: 20 MEQ
     Route: 048
     Dates: start: 19960101

REACTIONS (3)
  - GASTRIC ULCER HAEMORRHAGE [None]
  - NOCTURNAL DYSPNOEA [None]
  - CARDIAC FAILURE CONGESTIVE [None]
